FAERS Safety Report 10988992 (Version 1)
Quarter: 2015Q2

REPORT INFORMATION
  Report Type: Report from Study
  Country: DE (occurrence: DE)
  Receive Date: 20150405
  Receipt Date: 20150405
  Transmission Date: 20150821
  Serious: Yes (Hospitalization)
  Sender: FDA-Public Use
  Company Number: DE-AMGEN-DEUNI2015032012

PATIENT
  Age: 54 Year
  Sex: Female

DRUGS (3)
  1. METHYLPREDNISOLONE. [Concomitant]
     Active Substance: METHYLPREDNISOLONE
     Dosage: UNK UNK, UNK
  2. ETANERCEPT [Suspect]
     Active Substance: ETANERCEPT
     Indication: PRODUCT USED FOR UNKNOWN INDICATION
     Dosage: 25 MG EVERY 4 DAYS
     Route: 065
     Dates: end: 201411
  3. DENOSUMAB [Concomitant]
     Active Substance: DENOSUMAB
     Dosage: UNK UNK, UNK

REACTIONS (1)
  - Thrombophlebitis [Not Recovered/Not Resolved]

NARRATIVE: CASE EVENT DATE: 20141030
